FAERS Safety Report 4999401-2 (Version None)
Quarter: 2006Q2

REPORT INFORMATION
  Report Type: 
  Country: None (occurrence: None)
  Receive Date: 20060511
  Receipt Date: 20010323
  Transmission Date: 20061013
  Serious: Yes (Life-Threatening, Hospitalization)
  Sender: FDA-Public Use
  Company Number: PL-ROCHE-257248

PATIENT
  Age: 17 Year
  Sex: Male
  Weight: 81 kg

DRUGS (5)
  1. BACTRIM DS [Suspect]
     Indication: INFLUENZA LIKE ILLNESS
     Route: 048
  2. ANTIPYRETIC [Concomitant]
  3. HOMEOPATHIC DRUG NOS [Concomitant]
  4. UNKNOWN DRUG [Concomitant]
     Dosage: DRUG REPORTED AS UNDEFINED SYRUP.
  5. APAP TAB [Concomitant]

REACTIONS (10)
  - INFECTIOUS MONONUCLEOSIS [None]
  - LOSS OF CONSCIOUSNESS [None]
  - LYMPHADENOPATHY [None]
  - PEMPHIGOID [None]
  - RASH MACULO-PAPULAR [None]
  - RENAL FAILURE [None]
  - RESPIRATORY FAILURE [None]
  - SCARLET FEVER [None]
  - TOXIC EPIDERMAL NECROLYSIS [None]
  - VOMITING [None]
